FAERS Safety Report 5475758-3 (Version None)
Quarter: 2007Q4

REPORT INFORMATION
  Report Type: 
  Country: None (occurrence: None)
  Receive Date: 20071003
  Receipt Date: 20070922
  Transmission Date: 20080405
  Serious: Yes (Hospitalization, Other)
  Sender: FDA-Public Use
  Company Number: US-AMGEN-QUU244656

PATIENT
  Sex: Female
  Weight: 69.9 kg

DRUGS (3)
  1. ENBREL [Suspect]
     Indication: RHEUMATOID ARTHRITIS
     Route: 058
     Dates: start: 19981201
  2. METHOTREXATE [Concomitant]
  3. ACTONEL [Concomitant]

REACTIONS (9)
  - FALL [None]
  - HIP FRACTURE [None]
  - INJECTION SITE ERYTHEMA [None]
  - INJECTION SITE PAIN [None]
  - INJECTION SITE SWELLING [None]
  - MUSCULOSKELETAL STIFFNESS [None]
  - NEUROPATHY [None]
  - OSTEOARTHRITIS [None]
  - RHEUMATOID ARTHRITIS [None]
